FAERS Safety Report 19271573 (Version 12)
Quarter: 2021Q4

REPORT INFORMATION
  Report Type: Report from Study
  Country: None (occurrence: CH)
  Receive Date: 20210519
  Receipt Date: 20211004
  Transmission Date: 20220303
  Serious: Yes (Hospitalization)
  Sender: FDA-Public Use
  Company Number: CH-ABBVIE-21K-151-3909107-00

PATIENT
  Age: 68 Year
  Sex: Female
  Weight: 54.3 kg

DRUGS (12)
  1. CARBIDOPA\LEVODOPA [Suspect]
     Active Substance: CARBIDOPA\LEVODOPA
     Indication: Parkinson^s disease
     Dosage: MD: 5 ML, CRD: 3.8 ML/H, CRN: 0 ML/H, ED: 1 ML,16 H THERAPY
     Route: 050
     Dates: start: 20201117, end: 20201204
  2. CARBIDOPA\LEVODOPA [Suspect]
     Active Substance: CARBIDOPA\LEVODOPA
     Dosage: MD: 5 ML, CRD: 3.6 ML/H, CRN: 0 ML/H, ED: 1 ML, 16 H THERAPY
     Route: 050
     Dates: start: 20201204, end: 20201208
  3. CARBIDOPA\LEVODOPA [Suspect]
     Active Substance: CARBIDOPA\LEVODOPA
     Dosage: MD: 6 ML, CRD: 3.6 ML/H, CRN: 0 ML/H, ED: 1 ML, 16 H THERAPY
     Route: 050
     Dates: start: 20201208, end: 20201217
  4. CARBIDOPA\LEVODOPA [Suspect]
     Active Substance: CARBIDOPA\LEVODOPA
     Dosage: MD: 6 ML, CRD: 3.7 ML/H, CRN: 2.4 ML/H, 1 CASSETTE PER DAY.
     Route: 050
     Dates: start: 20201217, end: 20210202
  5. CARBIDOPA\LEVODOPA [Suspect]
     Active Substance: CARBIDOPA\LEVODOPA
     Dosage: MD: 6 ML, CRD: 3.8 ML/H, CRN: 2.5 ML/H, ED: 1 ML, 1 CASSETTE PER DAY.
     Route: 050
     Dates: start: 20210202, end: 20210218
  6. CARBIDOPA\LEVODOPA [Suspect]
     Active Substance: CARBIDOPA\LEVODOPA
     Dosage: MD: 6 ML, CRD: 3.8 ML/H, CRN: 2.6 ML/H, ED: 1 ML, 1 CASSETTE PER DAY.
     Route: 050
     Dates: start: 20210218, end: 20210315
  7. CARBIDOPA\LEVODOPA [Suspect]
     Active Substance: CARBIDOPA\LEVODOPA
     Dosage: MD: 6 ML, CRD: 4.0 ML/H, CRN: 0 ML/H, ED: 1 ML, 1 CASSETTE PER DAY.
     Route: 050
     Dates: start: 20210315, end: 20210506
  8. CARBIDOPA\LEVODOPA [Suspect]
     Active Substance: CARBIDOPA\LEVODOPA
     Dosage: MD: 3.5 ML, CRD: 4.3 ML/H, CRN: 1 ML/H, ED: 0 ML, 1 CASSETTE PER DAY.
     Route: 050
     Dates: start: 20210506, end: 202105
  9. CARBIDOPA\LEVODOPA [Suspect]
     Active Substance: CARBIDOPA\LEVODOPA
     Dosage: MD: 3.5 ML, CRD: 4.0 ML/H, CRN: 1 ML/H, ED: 0 ML. 1 CASSETTE PER DAY.
     Route: 050
     Dates: start: 202105, end: 20210517
  10. CARBIDOPA\LEVODOPA [Suspect]
     Active Substance: CARBIDOPA\LEVODOPA
     Dosage: MD: 6 ML, CRD: 4.1 ML/H, CRN: 1 ML/H, ED: 1 ML. 1 CASSETTE PER DAY.
     Route: 050
     Dates: start: 20210517, end: 2021
  11. CARBIDOPA\LEVODOPA [Suspect]
     Active Substance: CARBIDOPA\LEVODOPA
     Dosage: MD: 3.8 ML, CRD: 3.8 ML/H, ED: 5.8 ML (BLOCKING TIME 1 HOUR)?16 H THERAPY
     Route: 050
     Dates: start: 20210604, end: 20210604
  12. CARBIDOPA\LEVODOPA [Suspect]
     Active Substance: CARBIDOPA\LEVODOPA
     Dosage: MD: 5.8 ML, CRD: 3.8 ML/H, ED: 1 ML (BLOCKING TIME 3 HOURS)?16 H THERAPY
     Route: 050
     Dates: start: 20210604

REACTIONS (26)
  - Mobility decreased [Not Recovered/Not Resolved]
  - Mental disorder [Not Recovered/Not Resolved]
  - Psychiatric decompensation [Unknown]
  - Musculoskeletal disorder [Not Recovered/Not Resolved]
  - Nightmare [Unknown]
  - Freezing phenomenon [Unknown]
  - Back pain [Not Recovered/Not Resolved]
  - Loss of personal independence in daily activities [Unknown]
  - Screaming [Not Recovered/Not Resolved]
  - Partner stress [Unknown]
  - Incorrect dose administered [Recovered/Resolved]
  - Dyskinesia [Unknown]
  - Overdose [Recovered/Resolved]
  - Hallucination [Unknown]
  - Freezing phenomenon [Not Recovered/Not Resolved]
  - Weight decreased [Not Recovered/Not Resolved]
  - Decreased appetite [Unknown]
  - Psychiatric symptom [Unknown]
  - Blood pressure systolic increased [Unknown]
  - Mental impairment [Not Recovered/Not Resolved]
  - Sedation [Unknown]
  - Hyporesponsive to stimuli [Unknown]
  - Somnolence [Unknown]
  - Eye movement disorder [Unknown]
  - Miosis [Unknown]
  - Pain [Unknown]

NARRATIVE: CASE EVENT DATE: 20210101
